FAERS Safety Report 5393668-7 (Version None)
Quarter: 2007Q3

REPORT INFORMATION
  Report Type: 
  Country: None (occurrence: None)
  Receive Date: 20070720
  Receipt Date: 20070720
  Transmission Date: 20080115
  Serious: Yes (Other)
  Sender: FDA-Public Use
  Company Number: None

PATIENT
  Sex: Female
  Weight: 77.1115 kg

DRUGS (2)
  1. VICODIN ES [Suspect]
     Indication: FIBROMYALGIA
     Dosage: VICODIN ES ONE Q 6 HRS PRN YRS AGO
  2. VICODIN ES [Suspect]
     Indication: SYNOVITIS
     Dosage: VICODIN ES ONE Q 6 HRS PRN YRS AGO

REACTIONS (2)
  - OEDEMA PERIPHERAL [None]
  - RASH [None]
